FAERS Safety Report 9416984 (Version 1)
Quarter: 2013Q3

REPORT INFORMATION
  Report Type: Spontaneous
  Country: IT (occurrence: IT)
  Receive Date: 20130724
  Receipt Date: 20130724
  Transmission Date: 20140515
  Serious: Yes (Hospitalization)
  Sender: FDA-Public Use
  Company Number: IT-VERTEX PHARMACEUTICALS INC-2013-008194

PATIENT
  Age: 52 Year
  Sex: Male
  Weight: 80 kg

DRUGS (3)
  1. INCIVO [Suspect]
     Indication: CHRONIC HEPATITIS C
     Dosage: 2250 MG, QD, TABLET
     Route: 065
     Dates: start: 20130418, end: 20130708
  2. COPEGUS [Concomitant]
     Indication: CHRONIC HEPATITIS C
     Dosage: DOSAGE FORM: TABLETS
     Dates: start: 20130418, end: 20130718
  3. PEGASYS [Concomitant]
     Indication: CHRONIC HEPATITIS C
     Dosage: DOSAGE FORM: SOLUTION FOR INJECTION
     Dates: start: 20130408, end: 20130710

REACTIONS (2)
  - Cough [Recovered/Resolved]
  - Pruritus [Recovered/Resolved]
